FAERS Safety Report 9401804 (Version 2)
Quarter: 2013Q3

REPORT INFORMATION
  Report Type: Spontaneous
  Country: TW (occurrence: TW)
  Receive Date: 20130716
  Receipt Date: 20130806
  Transmission Date: 20140515
  Serious: Yes (Hospitalization)
  Sender: FDA-Public Use
  Company Number: TW-AMGEN-TWNSP2013049200

PATIENT
  Age: 33 Year
  Sex: Male

DRUGS (4)
  1. ENBREL [Suspect]
     Indication: ANKYLOSING SPONDYLITIS
     Dosage: 25 MG, 2X/WEEK
     Route: 058
     Dates: start: 20130426
  2. POLYTAR                            /00325301/ [Concomitant]
     Indication: PSORIATIC ARTHROPATHY
     Dosage: UNK, BID
     Route: 061
     Dates: start: 20130521
  3. SALAZOPYRIN EN [Concomitant]
     Indication: ANKYLOSING SPONDYLITIS
     Dosage: 1000 MG, 2X/DAY
     Route: 048
     Dates: start: 20130521
  4. CELECOXIB [Concomitant]
     Indication: ANKYLOSING SPONDYLITIS
     Dosage: 1 DF, UNK
     Route: 048
     Dates: start: 20130521

REACTIONS (1)
  - Hodgkin^s disease [Not Recovered/Not Resolved]
